FAERS Safety Report 6885652-9 (Version None)
Quarter: 2010Q3

REPORT INFORMATION
  Report Type: 
  Country: None (occurrence: None)
  Receive Date: 20100729
  Receipt Date: 20080513
  Transmission Date: 20110219
  Serious: No
  Sender: FDA-Public Use
  Company Number: US-PFIZER INC-2008041206

PATIENT
  Sex: Female

DRUGS (2)
  1. CELEBREX [Suspect]
     Indication: FOOT OPERATION
     Route: 048
     Dates: start: 20080509
  2. NORCO [Concomitant]

REACTIONS (1)
  - MUSCULAR WEAKNESS [None]
